FAERS Safety Report 23972016 (Version 1)
Quarter: 2024Q2

REPORT INFORMATION
  Report Type: Spontaneous
  Country: US (occurrence: US)
  Receive Date: 20240613
  Receipt Date: 20240613
  Transmission Date: 20240716
  Serious: No
  Sender: FDA-Public Use
  Company Number: US-COSETTE-CP2024US000122

PATIENT
  Age: 53 Year
  Sex: Female
  Weight: 160 kg

DRUGS (4)
  1. VYLEESI [Suspect]
     Active Substance: BREMELANOTIDE ACETATE
     Indication: Libido decreased
     Dosage: 6 TIMES
     Route: 058
     Dates: start: 202403, end: 20240524
  2. ESTRADIOL [Concomitant]
     Active Substance: ESTRADIOL
     Indication: Product used for unknown indication
     Route: 065
  3. YUVAFEM [Concomitant]
     Active Substance: ESTRADIOL HEMIHYDRATE
     Indication: Product used for unknown indication
     Route: 065
  4. LYSINE [Concomitant]
     Active Substance: LYSINE
     Indication: Product used for unknown indication
     Route: 065

REACTIONS (5)
  - Illness [Recovered/Resolved]
  - Dysmenorrhoea [Unknown]
  - Vaginal haemorrhage [Unknown]
  - Nausea [Recovered/Resolved]
  - Injection site pain [Recovered/Resolved]

NARRATIVE: CASE EVENT DATE: 20240301
